FAERS Safety Report 9407474 (Version 3)
Quarter: 2015Q4

REPORT INFORMATION
  Report Type: Other
  Country: DK (occurrence: DK)
  Receive Date: 20130718
  Receipt Date: 20151230
  Transmission Date: 20160305
  Serious: Yes (Other)
  Sender: FDA-Public Use
  Company Number: DK-MYLANLABS-2013S1014890

PATIENT

DRUGS (1)
  1. BACLOFEN. [Suspect]
     Active Substance: BACLOFEN
     Dosage: 10 MG,QID
     Dates: start: 20120116, end: 20120628

REACTIONS (4)
  - Hypoacusis [Not Recovered/Not Resolved]
  - Retinal detachment [Recovered/Resolved]
  - Tinnitus [Not Recovered/Not Resolved]
  - Muscle disorder [Unknown]

NARRATIVE: CASE EVENT DATE: 2012
